FAERS Safety Report 8605979-X (Version None)
Quarter: 2012Q3

REPORT INFORMATION
  Report Type: 
  Country: None (occurrence: None)
  Receive Date: 20120820
  Receipt Date: 20120814
  Transmission Date: 20120928
  Serious: Yes (Other)
  Sender: FDA-Public Use
  Company Number: US-PFIZER INC-2012198978

PATIENT
  Age: 53 Year
  Sex: Female
  Weight: 109 kg

DRUGS (9)
  1. PRAVASTATIN [Concomitant]
     Dosage: 20 MG, 1X/DAY
  2. FIORICET [Concomitant]
     Indication: MIGRAINE
     Dosage: 50/325/40MG, UNK
  3. BENAZEPRIL [Concomitant]
     Indication: HYPERTENSION
     Dosage: 40 MG, 2X/DAY
  4. XANAX [Concomitant]
     Dosage: 1 MG, 2X/DAY
     Route: 048
  5. CARVEDILOL [Concomitant]
     Indication: CARDIAC DISORDER
     Dosage: 12.5 MG, 1X/DAY
  6. TIZANIDINE [Concomitant]
     Indication: FIBROMYALGIA
     Dosage: 4 MG, 3X/DAY
  7. LYRICA [Suspect]
     Indication: FIBROMYALGIA
     Dosage: 100 MG, 2X/DAY
     Route: 048
     Dates: start: 20050101
  8. LEVOTHYROXINE [Concomitant]
     Indication: HYPOTHYROIDISM
     Dosage: 137 UG, 1X/DAY
  9. CITALOPRAM [Concomitant]
     Indication: FIBROMYALGIA
     Dosage: 40 MG, 1X/DAY

REACTIONS (1)
  - DIABETES MELLITUS [None]
